FAERS Safety Report 7237171-8 (Version None)
Quarter: 2011Q1

REPORT INFORMATION
  Report Type: 
  Country: None (occurrence: None)
  Receive Date: 20110121
  Receipt Date: 20110112
  Transmission Date: 20110831
  Serious: Yes (Other)
  Sender: FDA-Public Use
  Company Number: PHFR2010IE01362

PATIENT
  Sex: Female

DRUGS (2)
  1. CLOZARIL [Suspect]
     Indication: SCHIZOPHRENIA
     Dosage: 450 MG / DAY
     Route: 048
     Dates: start: 20090126
  2. CLOZARIL [Suspect]
     Route: 048
     Dates: start: 20090126, end: 19000101

REACTIONS (5)
  - WHITE BLOOD CELL COUNT DECREASED [None]
  - RED BLOOD CELL SEDIMENTATION RATE INCREASED [None]
  - CELLULITIS [None]
  - OEDEMA PERIPHERAL [None]
  - NEUTROPHIL COUNT DECREASED [None]
